FAERS Safety Report 4406330-1 (Version None)
Quarter: 2004Q3

REPORT INFORMATION
  Report Type: 
  Country: None (occurrence: None)
  Receive Date: 20040723
  Receipt Date: 20030623
  Transmission Date: 20050211
  Serious: No
  Sender: FDA-Public Use
  Company Number: US-GLAXOSMITHKLINE-A0413594A

PATIENT
  Age: 68 Year
  Sex: Female

DRUGS (8)
  1. AVANDIA [Suspect]
     Dosage: 4MG PER DAY
     Route: 048
     Dates: start: 20030622
  2. ZOCOR [Concomitant]
  3. SYNTHROID [Concomitant]
  4. OXAZEPAM [Concomitant]
  5. METOPROLOL [Concomitant]
  6. COZAAR [Concomitant]
  7. PROTONIX [Concomitant]
  8. PREVACID [Concomitant]

REACTIONS (3)
  - FATIGUE [None]
  - FEELING ABNORMAL [None]
  - SOMNOLENCE [None]
